FAERS Safety Report 6649745-3 (Version None)
Quarter: 2010Q1

REPORT INFORMATION
  Report Type: 
  Country: None (occurrence: None)
  Receive Date: 20100324
  Receipt Date: 20100324
  Transmission Date: 20100710
  Serious: No
  Sender: FDA-Public Use
  Company Number: None

PATIENT
  Age: 53 Year
  Sex: Male
  Weight: 53.64 kg

DRUGS (1)
  1. AMIODARONE HCL [Suspect]
     Dosage: IV
     Route: 042
     Dates: start: 20090709, end: 20090709

REACTIONS (1)
  - HYPOTENSION [None]
